FAERS Safety Report 9177053 (Version 1)
Quarter: 2013Q1

REPORT INFORMATION
  Report Type: Spontaneous
  Country: US (occurrence: US)
  Receive Date: 20130321
  Receipt Date: 20130321
  Transmission Date: 20140127
  Serious: No
  Sender: FDA-Public Use
  Company Number: US-BAYER-2013-035127

PATIENT
  Sex: Female

DRUGS (1)
  1. ALEVE CAPLET [Suspect]
     Indication: PSORIASIS
     Dosage: 2 DF, BID

REACTIONS (3)
  - Off label use [None]
  - Therapeutic response unexpected [None]
  - Overdose [None]
